FAERS Safety Report 10880991 (Version 1)
Quarter: 2015Q1

REPORT INFORMATION
  Report Type: Spontaneous
  Country: US (occurrence: US)
  Receive Date: 20150303
  Receipt Date: 20150303
  Transmission Date: 20150721
  Serious: No
  Sender: FDA-Public Use
  Company Number: US-PFIZER INC-2015069387

PATIENT
  Age: 72 Year
  Sex: Female

DRUGS (7)
  1. NABUMETONE. [Suspect]
     Active Substance: NABUMETONE
     Indication: PAIN
  2. DICLOFENAC [Suspect]
     Active Substance: DICLOFENAC
     Indication: PAIN
  3. DICLOFENAC [Suspect]
     Active Substance: DICLOFENAC
     Indication: MUSCLE SPASMS
  4. DICLOFENAC [Suspect]
     Active Substance: DICLOFENAC
     Indication: ARTHRITIS
     Dosage: UNK
  5. NABUMETONE. [Suspect]
     Active Substance: NABUMETONE
     Indication: ARTHRITIS
     Dosage: UNK
  6. XALATAN [Suspect]
     Active Substance: LATANOPROST
     Indication: CATARACT
     Dosage: UNK
  7. NABUMETONE. [Suspect]
     Active Substance: NABUMETONE
     Indication: MUSCLE SPASMS

REACTIONS (1)
  - Drug ineffective [Unknown]
